FAERS Safety Report 17963707 (Version 1)
Quarter: 2020Q2

REPORT INFORMATION
  Report Type: Spontaneous
  Country: ES (occurrence: ES)
  Receive Date: 20200630
  Receipt Date: 20200630
  Transmission Date: 20200714
  Serious: Yes (Other)
  Sender: FDA-Public Use
  Company Number: ES-PFIZER INC-2020247450

PATIENT
  Age: 48 Year

DRUGS (7)
  1. TEICOPLANIN [Suspect]
     Active Substance: TEICOPLANIN
     Indication: INTESTINAL PERFORATION
     Dosage: UNK
     Route: 065
     Dates: start: 20200521
  2. MEROPENEM. [Suspect]
     Active Substance: MEROPENEM
     Indication: INTESTINAL PERFORATION
     Dosage: UNK
     Route: 065
     Dates: start: 20200521
  3. CEFTRIAXONA LDP TORLAN [Suspect]
     Active Substance: CEFTRIAXONE SODIUM
     Indication: INTESTINAL PERFORATION
     Dosage: UNK
     Route: 065
     Dates: start: 20200516, end: 20200518
  4. FLUOROURACIL. [Suspect]
     Active Substance: FLUOROURACIL
     Indication: ADENOCARCINOMA OF COLON
     Dosage: 1 DF, SINGLE
     Route: 065
     Dates: start: 20200508
  5. OXALIPLATIN. [Suspect]
     Active Substance: OXALIPLATIN
     Indication: ADENOCARCINOMA OF COLON
     Dosage: 1 DF, SINGLE
     Route: 065
     Dates: start: 20200508
  6. CALCIUM FOLINATE [Suspect]
     Active Substance: LEUCOVORIN CALCIUM
     Indication: ADENOCARCINOMA OF COLON
     Dosage: 1 DF, SINGLE
     Route: 065
     Dates: start: 20200508
  7. PIPERACILINA + TAZOBACTAM [Suspect]
     Active Substance: PIPERACILLIN SODIUM\TAZOBACTAM SODIUM
     Indication: INTESTINAL PERFORATION
     Dosage: UNK
     Route: 065
     Dates: start: 20200518, end: 20200521

REACTIONS (1)
  - Toxic skin eruption [Unknown]

NARRATIVE: CASE EVENT DATE: 202005
